FAERS Safety Report 7707597-4 (Version None)
Quarter: 2011Q3

REPORT INFORMATION
  Report Type: 
  Country: None (occurrence: None)
  Receive Date: 20110824
  Receipt Date: 20110822
  Transmission Date: 20111222
  Serious: Yes (Hospitalization)
  Sender: FDA-Public Use
  Company Number: DE-ABBOTT-11P-062-0844679-00

PATIENT
  Sex: Male

DRUGS (5)
  1. ASPIRIN [Concomitant]
     Indication: THROMBOSIS PROPHYLAXIS
  2. HUMIRA [Suspect]
     Indication: RHEUMATOID ARTHRITIS
     Route: 058
     Dates: start: 20110502
  3. ANTIHYPERTENSIVES [Concomitant]
     Indication: HYPERTENSION
  4. CORTISONE ACETATE [Concomitant]
     Indication: RHEUMATOID ARTHRITIS
  5. METHOTREXATE [Concomitant]
     Indication: RHEUMATOID ARTHRITIS
     Dates: start: 20110101

REACTIONS (2)
  - IMPAIRED WORK ABILITY [None]
  - VASCULAR STENOSIS [None]
